FAERS Safety Report 15286921 (Version 3)
Quarter: 2018Q4

REPORT INFORMATION
  Report Type: Spontaneous
  Country: JP (occurrence: JP)
  Receive Date: 20180816
  Receipt Date: 20181112
  Transmission Date: 20190204
  Serious: Yes (Other)
  Sender: FDA-Public Use
  Company Number: JP-BAXTER-2018BAX021690

PATIENT
  Age: 57 Year
  Sex: Female

DRUGS (6)
  1. DOXORUBICIN HYDROCHLORIDE. [Suspect]
     Active Substance: DOXORUBICIN HYDROCHLORIDE
     Indication: LYMPHOMA
     Dosage: TWO CYCLES OF R-CHOP THERAPY
     Route: 065
  2. ENDOXAN 1G [Suspect]
     Active Substance: CYCLOPHOSPHAMIDE
     Indication: LYMPHOMA
     Dosage: TWO CYCLES OF R-CHOP THERAPY
     Route: 065
  3. PREDONINE [Suspect]
     Active Substance: PREDNISOLONE
     Dosage: SECOND CYCLE OF R-CHOP THERAPY
     Route: 065
  4. PREDONINE [Suspect]
     Active Substance: PREDNISOLONE
     Indication: LYMPHOMA
     Dosage: FIRST CYCLE OF R-CHOP THERAPY
     Route: 065
  5. RITUXIMAB(GENETICAL RECOMBINATION) [Suspect]
     Active Substance: RITUXIMAB
     Indication: LYMPHOMA
     Dosage: TWO CYCLES OF R-CHOP THERAPY
     Route: 065
  6. VINCRISTINE SULFATE. [Suspect]
     Active Substance: VINCRISTINE SULFATE
     Indication: LYMPHOMA
     Dosage: TWO CYCLES OF R-CHOP THERAPY
     Route: 065

REACTIONS (5)
  - Adrenal suppression [Unknown]
  - Chest discomfort [Unknown]
  - Pain [Unknown]
  - Withdrawal syndrome [Unknown]
  - Back pain [Unknown]
